FAERS Safety Report 9563076 (Version 2)
Quarter: 2013Q3

REPORT INFORMATION
  Report Type: Spontaneous
  Country: US (occurrence: US)
  Receive Date: 20130927
  Receipt Date: 20130927
  Transmission Date: 20140515
  Serious: No
  Sender: FDA-Public Use
  Company Number: US-BRISTOL-MYERS SQUIBB COMPANY-17017922

PATIENT
  Age: 60 Year
  Sex: Male
  Weight: 81.63 kg

DRUGS (1)
  1. ONGLYZA TABS [Suspect]
     Dosage: RESTART ON:22SEP12
     Dates: start: 201208

REACTIONS (4)
  - Chest pain [Not Recovered/Not Resolved]
  - Pain in extremity [Unknown]
  - Sensation of heaviness [Unknown]
  - Musculoskeletal pain [Unknown]
